FAERS Safety Report 25852631 (Version 1)
Quarter: 2025Q3

REPORT INFORMATION
  Report Type: Spontaneous
  Country: IN (occurrence: None)
  Receive Date: 20250925
  Receipt Date: 20250925
  Transmission Date: 20251020
  Serious: Yes (Other)
  Sender: FDA-CTU
  Company Number: None

PATIENT
  Age: 25 Year
  Sex: Male
  Weight: 76 kg

DRUGS (5)
  1. CEFPODOXIME [Suspect]
     Active Substance: CEFPODOXIME
  2. cepodem xp 325 Tab [Concomitant]
  3. ulpan Tab [Concomitant]
  4. sumo cold Cap [Concomitant]
  5. vizilac rich [Concomitant]

REACTIONS (6)
  - Product dispensing error [None]
  - Expired product administered [None]
  - Dizziness [None]
  - Headache [None]
  - Impaired work ability [None]
  - Abdominal pain upper [None]

NARRATIVE: CASE EVENT DATE: 20250924
